FAERS Safety Report 5736973-4 (Version None)
Quarter: 2008Q2

REPORT INFORMATION
  Report Type: 
  Country: None (occurrence: None)
  Receive Date: 20080512
  Receipt Date: 20080512
  Transmission Date: 20081010
  Serious: Yes (Death, Disabling)
  Sender: FDA-Public Use
  Company Number: None

PATIENT
  Age: 64 Year
  Sex: Female
  Weight: 63.05 kg

DRUGS (1)
  1. CRESTOR [Suspect]
     Dosage: 10 MG 1-DAY

REACTIONS (4)
  - ASTHENIA [None]
  - BACK PAIN [None]
  - EYE DISORDER [None]
  - MYALGIA [None]
